FAERS Safety Report 11886331 (Version 4)
Quarter: 2016Q2

REPORT INFORMATION
  Report Type: Report from Study
  Country: US (occurrence: US)
  Receive Date: 20160104
  Receipt Date: 20160422
  Transmission Date: 20160815
  Serious: Yes (Hospitalization, Other)
  Sender: FDA-Public Use
  Company Number: US-ACTELION-A-US2015-119598

PATIENT
  Age: 63 Year
  Sex: Female

DRUGS (7)
  1. TYVASO [Concomitant]
     Active Substance: TREPROSTINIL
  2. TRACLEER [Suspect]
     Active Substance: BOSENTAN
     Indication: PULMONARY ARTERIAL HYPERTENSION
     Dosage: 62.5 MG, BID
     Route: 048
     Dates: start: 2010
  3. TRACLEER [Suspect]
     Active Substance: BOSENTAN
     Dosage: 125 MG, BID
     Route: 048
     Dates: start: 2011
  4. ADCIRCA [Concomitant]
     Active Substance: TADALAFIL
     Dosage: UNK
     Dates: start: 2014
  5. TREPROSTINIL DIOLAMIN [Concomitant]
     Active Substance: TREPROSTINIL DIOLAMINE
     Dosage: 4.375 MG, TID
     Dates: start: 201510
  6. OXYGEN. [Concomitant]
     Active Substance: OXYGEN
  7. COUMADIN [Concomitant]
     Active Substance: WARFARIN SODIUM

REACTIONS (18)
  - Ventricular tachycardia [Unknown]
  - Pain in jaw [Unknown]
  - Insomnia [Unknown]
  - Pneumonia [Recovered/Resolved]
  - Headache [Unknown]
  - Flushing [Unknown]
  - Gastrooesophageal reflux disease [Unknown]
  - Pain [Unknown]
  - Anxiety [Unknown]
  - Myalgia [Unknown]
  - Palpitations [Unknown]
  - Diarrhoea [Unknown]
  - Gastrointestinal tube insertion [Unknown]
  - Atrial fibrillation [Unknown]
  - Interstitial lung disease [Recovered/Resolved]
  - Nausea [Unknown]
  - Lower respiratory tract inflammation [Unknown]
  - Discomfort [Unknown]

NARRATIVE: CASE EVENT DATE: 20151201
